FAERS Safety Report 23683838 (Version 1)
Quarter: 2024Q1

REPORT INFORMATION
  Report Type: Spontaneous
  Country: US (occurrence: None)
  Receive Date: 20240328
  Receipt Date: 20240328
  Transmission Date: 20240410
  Serious: Yes (Other)
  Sender: FDA-Public Use
  Company Number: None

PATIENT
  Age: 65 Year
  Sex: Female
  Weight: 51.1 kg

DRUGS (4)
  1. AFLIBERCEPT [Suspect]
     Active Substance: AFLIBERCEPT
     Indication: Colon cancer
     Dosage: 231 MG EVERY 14 DAYS INTRAVENOUS
     Route: 042
     Dates: start: 20231206
  2. IRINOTECAN [Concomitant]
     Active Substance: IRINOTECAN
     Dates: start: 20231206
  3. 5 F-U [Concomitant]
     Dates: start: 20231206
  4. LEUCOVORIN [Concomitant]
     Active Substance: LEUCOVORIN\LEUCOVORIN CALCIUM
     Dates: start: 20231206

REACTIONS (7)
  - Nausea [None]
  - Throat tightness [None]
  - Vomiting [None]
  - Dizziness [None]
  - Heart rate increased [None]
  - Blood pressure increased [None]
  - Infusion related reaction [None]

NARRATIVE: CASE EVENT DATE: 20240326
